FAERS Safety Report 20598815 (Version 1)
Quarter: 2022Q1

REPORT INFORMATION
  Report Type: Other
  Country: IN (occurrence: None)
  Receive Date: 20220315
  Receipt Date: 20220315
  Transmission Date: 20220423
  Serious: Yes (Hospitalization, Other)
  Sender: FDA-Public Use
  Company Number: IN-Invatech-000231

PATIENT
  Age: 23 Year
  Sex: Female

DRUGS (3)
  1. LABETALOL [Suspect]
     Active Substance: LABETALOL\LABETALOL HYDROCHLORIDE
     Indication: Blood pressure increased
     Dosage: 20 MG REPEATED SAME AFTER 15 MIN
     Route: 042
  2. MAGNESIUM SULFATE [Suspect]
     Active Substance: MAGNESIUM SULFATE
     Indication: Eclampsia
     Dosage: 5 G OF 50%  AT 12:30 PM AND 4:30 PM
     Route: 042
  3. MAGNESIUM SULFATE [Suspect]
     Active Substance: MAGNESIUM SULFATE
     Indication: Eclampsia
     Dosage: 4 G OF 20%  AT 08:30 AM
     Route: 042

REACTIONS (3)
  - Acute kidney injury [Recovered/Resolved]
  - Exposure during pregnancy [Unknown]
  - Respiratory distress [Recovered/Resolved]
